FAERS Safety Report 5261512-4 (Version None)
Quarter: 2007Q1

REPORT INFORMATION
  Report Type: 
  Country: None (occurrence: None)
  Receive Date: 20070307
  Receipt Date: 20070222
  Transmission Date: 20070707
  Serious: No
  Sender: FDA-Public Use
  Company Number: T200700264

PATIENT
  Age: 43 Year
  Sex: Male

DRUGS (1)
  1. PAMELOR [Suspect]
     Indication: DEPRESSION

REACTIONS (2)
  - BRUGADA SYNDROME [None]
  - SYNCOPE [None]
